FAERS Safety Report 18096936 (Version 3)
Quarter: 2020Q4

REPORT INFORMATION
  Report Type: Report from Study
  Country: CN (occurrence: CN)
  Receive Date: 20200731
  Receipt Date: 20201030
  Transmission Date: 20210113
  Serious: Yes (Other)
  Sender: FDA-Public Use
  Company Number: CN-BRISTOL-MYERS SQUIBB COMPANY-BMS-2020-060543

PATIENT
  Sex: Male

DRUGS (2)
  1. NIVOLUMAB [Suspect]
     Active Substance: NIVOLUMAB
     Indication: NON-SMALL CELL LUNG CANCER
     Dosage: 200 MILLIGRAM, Q2WK
     Route: 042
  2. NIVOLUMAB [Suspect]
     Active Substance: NIVOLUMAB
     Dosage: 167 MILLIGRAM, Q2WK
     Route: 042

REACTIONS (4)
  - Thermal burn [Unknown]
  - Liver injury [Recovering/Resolving]
  - Metastases to bone [Unknown]
  - Gastritis [Unknown]

NARRATIVE: CASE EVENT DATE: 2019
